FAERS Safety Report 23243393 (Version 3)
Quarter: 2023Q4

REPORT INFORMATION
  Report Type: Spontaneous
  Country: US (occurrence: US)
  Receive Date: 20231130
  Receipt Date: 20231227
  Transmission Date: 20240110
  Serious: No
  Sender: FDA-Public Use
  Company Number: US-SANOFI-01850305

PATIENT
  Age: 84 Year
  Sex: Male

DRUGS (6)
  1. LANTUS SOLOSTAR [Suspect]
     Active Substance: INSULIN GLARGINE
     Indication: Diabetes mellitus
     Dosage: UNK UNK, BID; 4 UNITS IN THE MORNING ; 5 UNITS AT EVENING BID AND DRUG TREATMENT DURATION:5 TO 6 YEA
     Route: 065
  2. LANTUS SOLOSTAR [Suspect]
     Active Substance: INSULIN GLARGINE
     Dosage: 5 UNITS OF LANTUS IN THE MORNING AND 10 TO 11 UNITS OF LANTUS AT NIGHT, BID
  3. ELIQUIS [Concomitant]
     Active Substance: APIXABAN
  4. ATENOLOL [Concomitant]
     Active Substance: ATENOLOL
  5. PANTOPRAZOLE [Concomitant]
     Active Substance: PANTOPRAZOLE
  6. CREON [Concomitant]
     Active Substance: PANCRELIPASE AMYLASE\PANCRELIPASE LIPASE\PANCRELIPASE PROTEASE

REACTIONS (5)
  - Blood glucose decreased [Unknown]
  - Hypoglycaemia [Unknown]
  - Glycosylated haemoglobin increased [Unknown]
  - Product prescribing issue [Unknown]
  - Inappropriate schedule of product administration [Unknown]
